FAERS Safety Report 8590310-9 (Version None)
Quarter: 2012Q3

REPORT INFORMATION
  Report Type: 
  Country: None (occurrence: None)
  Receive Date: 20120813
  Receipt Date: 20120803
  Transmission Date: 20120928
  Serious: Yes (Hospitalization)
  Sender: FDA-Public Use
  Company Number: FR-GLAXOSMITHKLINE-B0820561A

PATIENT
  Sex: Female

DRUGS (2)
  1. ZONEGRAN [Concomitant]
     Indication: EPILEPSY
     Route: 048
     Dates: start: 20120101
  2. LAMICTAL [Suspect]
     Indication: EPILEPSY
     Route: 048
     Dates: start: 20120101, end: 20120101

REACTIONS (5)
  - GENERALISED ERYTHEMA [None]
  - HEPATITIS TOXIC [None]
  - TOXIC SKIN ERUPTION [None]
  - OEDEMA PERIPHERAL [None]
  - FACE OEDEMA [None]
